FAERS Safety Report 6782372-6 (Version None)
Quarter: 2010Q2

REPORT INFORMATION
  Report Type: 
  Country: None (occurrence: None)
  Receive Date: 20100621
  Receipt Date: 20100609
  Transmission Date: 20101027
  Serious: Yes (Hospitalization)
  Sender: FDA-Public Use
  Company Number: FR-PFIZER INC-2010072041

PATIENT
  Age: 85 Year
  Sex: Female

DRUGS (6)
  1. XALATAN [Suspect]
     Indication: GLAUCOMA
     Dosage: UNK
     Route: 047
     Dates: start: 20090201, end: 20100424
  2. ALLOPURINOL [Suspect]
     Indication: GOUT
     Dosage: 200 MG, 1X/DAY
     Route: 048
     Dates: start: 20090801, end: 20100415
  3. GLUCOR [Suspect]
     Indication: DIABETES MELLITUS
     Dosage: 100 MG, 3X/DAY
     Route: 048
     Dates: start: 20090801, end: 20100401
  4. OLMETEC [Suspect]
     Indication: HYPERTENSION
     Dosage: 20 MG, 1X/DAY
     Route: 048
     Dates: start: 20090801, end: 20100423
  5. CELIPROLOL [Suspect]
     Indication: HYPERTENSION
     Dosage: 1 DF, 1X/DAY
     Route: 048
     Dates: start: 20090801, end: 20100423
  6. CARBOMER [Suspect]
     Indication: GLAUCOMA
     Dosage: UNK
     Route: 047
     Dates: start: 20090201, end: 20100424

REACTIONS (1)
  - STEVENS-JOHNSON SYNDROME [None]
